FAERS Safety Report 10917770 (Version 4)
Quarter: 2015Q2

REPORT INFORMATION
  Report Type: Spontaneous
  Country: US (occurrence: US)
  Receive Date: 20150316
  Receipt Date: 20150616
  Transmission Date: 20150821
  Serious: No
  Sender: FDA-Public Use
  Company Number: US-GLAXOSMITHKLINE-US2015028280

PATIENT
  Sex: Female

DRUGS (5)
  1. PROPANOLOL [Concomitant]
     Active Substance: PROPRANOLOL HYDROCHLORIDE
  2. GABAPENTIN. [Concomitant]
     Active Substance: GABAPENTIN
  3. IMITREX [Suspect]
     Active Substance: SUMATRIPTAN\SUMATRIPTAN SUCCINATE
     Indication: MIGRAINE
     Route: 048
  4. IMITREX SPRAY [Suspect]
     Active Substance: SUMATRIPTAN
     Indication: MIGRAINE
     Route: 045
  5. IMITREX [Suspect]
     Active Substance: SUMATRIPTAN\SUMATRIPTAN SUCCINATE
     Indication: MIGRAINE

REACTIONS (3)
  - Vomiting [Unknown]
  - Headache [Unknown]
  - Drug ineffective [Not Recovered/Not Resolved]
